FAERS Safety Report 6762161-9 (Version None)
Quarter: 2010Q2

REPORT INFORMATION
  Report Type: 
  Country: None (occurrence: None)
  Receive Date: 20100609
  Receipt Date: 20100317
  Transmission Date: 20101027
  Serious: No
  Sender: FDA-Public Use
  Company Number: US-KINGPHARMUSA00001-K201000340

PATIENT
  Sex: Female

DRUGS (1)
  1. EMBEDA [Suspect]
     Dosage: UNK, TWICE
     Dates: start: 20100316

REACTIONS (3)
  - DIZZINESS [None]
  - HEADACHE [None]
  - TREMOR [None]
